FAERS Safety Report 13070088 (Version 5)
Quarter: 2017Q2

REPORT INFORMATION
  Report Type: Spontaneous
  Country: US (occurrence: US)
  Receive Date: 20161228
  Receipt Date: 20170615
  Transmission Date: 20170830
  Serious: Yes (Death, Hospitalization)
  Sender: FDA-Public Use
  Company Number: US-SAOL THERAPEUTICS-2016SAO01288

PATIENT
  Age: 66 Year
  Sex: Female
  Weight: 77.7 kg

DRUGS (4)
  1. LIORESAL [Suspect]
     Active Substance: BACLOFEN
     Dosage: 100 ?G, \DAY
  2. LIORESAL [Suspect]
     Active Substance: BACLOFEN
     Dosage: 325 ?G, \DAY
  3. LIORESAL [Suspect]
     Active Substance: BACLOFEN
     Indication: PARAPARESIS
     Dosage: 488 ?G, \DAY
     Route: 037
     Dates: start: 20161219
  4. LIORESAL [Suspect]
     Active Substance: BACLOFEN
     Indication: MUSCLE SPASTICITY
     Dosage: 421 ?G, \DAY
     Route: 037

REACTIONS (7)
  - Device infusion issue [Unknown]
  - Vomiting [Recovered/Resolved]
  - Device damage [Recovered/Resolved]
  - Malaise [Recovered/Resolved]
  - Myocardial infarction [Fatal]
  - Musculoskeletal stiffness [Unknown]
  - Fall [Unknown]

NARRATIVE: CASE EVENT DATE: 201612
